FAERS Safety Report 6464002-6 (Version None)
Quarter: 2009Q4

REPORT INFORMATION
  Report Type: 
  Country: None (occurrence: None)
  Receive Date: 20091201
  Receipt Date: 20091120
  Transmission Date: 20100525
  Serious: Yes (Other)
  Sender: FDA-Public Use
  Company Number: JP-BAYER-200912339BYL

PATIENT
  Age: 61 Year
  Sex: Male
  Weight: 70 kg

DRUGS (12)
  1. NEXAVAR [Suspect]
     Indication: HEPATIC NEOPLASM MALIGNANT
     Dosage: UNIT DOSE: 200 MG
     Route: 048
     Dates: start: 20090819
  2. NEXAVAR [Suspect]
     Dosage: UNIT DOSE: 200 MG
     Route: 048
     Dates: start: 20090729, end: 20090812
  3. NEXAVAR [Suspect]
     Dosage: UNIT DOSE: 200 MG
     Route: 048
     Dates: start: 20090706, end: 20090708
  4. NEXAVAR [Suspect]
     Dosage: TOTAL DAILY DOSE: 800 MG  UNIT DOSE: 200 MG
     Route: 048
     Dates: start: 20090630, end: 20090705
  5. LIVACT [Concomitant]
     Dosage: SINCE BEFORE ADMINISTRATION
     Route: 048
  6. GLYCYRON [Concomitant]
     Dosage: SINCE BEFORE ADMINISTRATION
     Route: 048
  7. URSO 250 [Concomitant]
     Dosage: SINCE BEFORE ADMINISTRATION
     Route: 048
  8. EVAMYL [Concomitant]
     Indication: PROPHYLAXIS
     Dosage: SINCE BEFORE ADMINISTRATION
     Route: 048
  9. LOXOPROFEN [Concomitant]
     Dosage: 120-180MG
     Route: 048
  10. NORVASC [Concomitant]
     Route: 048
     Dates: start: 20090629
  11. KERATINAMIN [Concomitant]
     Indication: PROPHYLAXIS
     Route: 061
     Dates: start: 20090629
  12. PROTECADIN [Concomitant]
     Indication: GASTRITIS PROPHYLAXIS
     Route: 048
     Dates: start: 20090728

REACTIONS (5)
  - ALOPECIA [None]
  - GINGIVAL BLEEDING [None]
  - HEPATIC FUNCTION ABNORMAL [None]
  - HYPERTENSION [None]
  - PALMAR-PLANTAR ERYTHRODYSAESTHESIA SYNDROME [None]
